FAERS Safety Report 7995800-5 (Version None)
Quarter: 2011Q4

REPORT INFORMATION
  Report Type: 
  Country: None (occurrence: None)
  Receive Date: 20111220
  Receipt Date: 20111025
  Transmission Date: 20120403
  Serious: Yes (Other)
  Sender: FDA-Public Use
  Company Number: US-PURDUE-USA-2011-0079815

PATIENT
  Sex: Female

DRUGS (2)
  1. OXYCONTIN [Suspect]
     Indication: POSTOPERATIVE ANALGESIA
  2. OXYCONTIN [Suspect]
     Indication: FIBROMYALGIA
     Dosage: UNK
     Dates: start: 19991207, end: 20060501

REACTIONS (14)
  - VOMITING [None]
  - INSOMNIA [None]
  - TREMOR [None]
  - DEPRESSION [None]
  - DEHYDRATION [None]
  - SUICIDAL IDEATION [None]
  - HYPERHIDROSIS [None]
  - CONSTIPATION [None]
  - DIARRHOEA [None]
  - INTESTINAL OBSTRUCTION [None]
  - DRUG WITHDRAWAL SYNDROME [None]
  - NAUSEA [None]
  - RHINORRHOEA [None]
  - PANIC ATTACK [None]
